FAERS Safety Report 8705208 (Version 2)
Quarter: 2013Q3

REPORT INFORMATION
  Report Type: Report from Study
  Country: US (occurrence: US)
  Receive Date: 20120803
  Receipt Date: 20130730
  Transmission Date: 20140515
  Serious: No
  Sender: FDA-Public Use
  Company Number: US-ABBOTT-12P-163-0956541-00

PATIENT
  Sex: Female
  Weight: 65.83 kg

DRUGS (7)
  1. NIASPAN (COATED) 1000MG [Suspect]
     Indication: HIGH DENSITY LIPOPROTEIN DECREASED
     Dates: start: 2011
  2. WARFARIN [Concomitant]
     Indication: ATRIAL FIBRILLATION
     Dosage: 5 TO 10
  3. DIGOXIN [Concomitant]
     Indication: PRODUCT USED FOR UNKNOWN INDICATION
  4. MICARDIS [Concomitant]
     Indication: PRODUCT USED FOR UNKNOWN INDICATION
  5. CARVEDILOL [Concomitant]
     Indication: PRODUCT USED FOR UNKNOWN INDICATION
  6. MAG-OX [Concomitant]
     Indication: PRODUCT USED FOR UNKNOWN INDICATION
  7. LOVASTATIN [Concomitant]
     Indication: PRODUCT USED FOR UNKNOWN INDICATION

REACTIONS (2)
  - Medication residue present [Not Recovered/Not Resolved]
  - Diarrhoea [Unknown]
